FAERS Safety Report 18605828 (Version 3)
Quarter: 2021Q1

REPORT INFORMATION
  Report Type: Report from Study
  Country: US (occurrence: US)
  Receive Date: 20201211
  Receipt Date: 20210211
  Transmission Date: 20210419
  Serious: Yes (Death, Hospitalization)
  Sender: FDA-Public Use
  Company Number: US-ROCHE-2707761

PATIENT
  Age: 65 Year
  Sex: Male
  Weight: 80.3 kg

DRUGS (8)
  1. RETACRIT [EPOETIN ZETA] [Concomitant]
     Active Substance: ERYTHROPOIETIN
     Indication: ANAEMIA
     Dosage: DOSE: 10000 OTHER
     Route: 058
     Dates: start: 20200708
  2. BENADRYL [Concomitant]
     Active Substance: DIPHENHYDRAMINE HYDROCHLORIDE
     Indication: INFUSION RELATED REACTION
     Route: 048
     Dates: start: 20201021, end: 20201021
  3. RETACRIT [EPOETIN ZETA] [Concomitant]
     Active Substance: ERYTHROPOIETIN
     Route: 058
     Dates: start: 20201024, end: 20201118
  4. XALATAN [Concomitant]
     Active Substance: LATANOPROST
     Indication: GLAUCOMA
     Route: 047
     Dates: start: 20190404
  5. TOCILIZUMAB. [Suspect]
     Active Substance: TOCILIZUMAB
     Indication: PLASMA CELL MYELOMA
     Dosage: START DATE OF MOST RECENT DOSE (652 MG/KG) OF STUDY DRUG PRIOR TO AE: 29/OCT/2020 AT 11:51 AM?12:51
     Route: 042
     Dates: start: 20201029
  6. TRUSOPT [Concomitant]
     Active Substance: DORZOLAMIDE HYDROCHLORIDE
     Indication: GLAUCOMA
     Route: 047
     Dates: start: 20180412
  7. PEPCID [Concomitant]
     Active Substance: FAMOTIDINE
     Indication: INFUSION RELATED REACTION
     Route: 042
     Dates: start: 20201021, end: 20201021
  8. BFCR4350A (ANTI?FCRH5/CD3 BISPECIFIC ANTIBODY) [Suspect]
     Active Substance: CEVOSTAMAB
     Indication: PLASMA CELL MYELOMA
     Dosage: DATE OF MOST RECENT DOSE OF BFCR4350A (ANTI?FCRH5/CD3 BISPECIFIC ANTIBODY) 3.6 MG PRIOR AE/SAE (ADVE
     Route: 042
     Dates: start: 20201021

REACTIONS (5)
  - Aspartate aminotransferase increased [Recovered/Resolved]
  - Cytokine release syndrome [Recovered/Resolved]
  - Haemophagocytic lymphohistiocytosis [Fatal]
  - Cytokine release syndrome [Recovered/Resolved]
  - Alanine aminotransferase increased [Recovered/Resolved]

NARRATIVE: CASE EVENT DATE: 20201028
